FAERS Safety Report 25808226 (Version 4)
Quarter: 2025Q4

REPORT INFORMATION
  Report Type: Spontaneous
  Country: US (occurrence: US)
  Receive Date: 20250916
  Receipt Date: 20251118
  Transmission Date: 20260117
  Serious: Yes (Hospitalization, Other)
  Sender: AMGEN
  Company Number: US-AMGEN-USASP2025180217

PATIENT
  Age: 60 Year
  Sex: Female

DRUGS (5)
  1. EVENITY [Suspect]
     Active Substance: ROMOSOZUMAB-AQQG
     Indication: Osteoporosis postmenopausal
     Dosage: 210 MILLIGRAM, QMO
     Route: 058
     Dates: start: 202502
  2. RETINOL [Concomitant]
     Active Substance: RETINOL
     Dosage: UNK
     Route: 065
  3. SYNTHROID [Concomitant]
     Active Substance: LEVOTHYROXINE SODIUM
     Route: 058
  4. ESTROGENS [Concomitant]
     Active Substance: ESTROGENS
     Route: 065
  5. BONIVA [Concomitant]
     Active Substance: IBANDRONATE SODIUM
     Dosage: UNK
     Route: 058

REACTIONS (23)
  - Blood phosphorus increased [Unknown]
  - Bone pain [Unknown]
  - Malaise [Recovered/Resolved]
  - Injection site pain [Unknown]
  - Myalgia [Not Recovered/Not Resolved]
  - Palpitations [Recovered/Resolved]
  - Periorbital swelling [Unknown]
  - Paraesthesia oral [Recovered/Resolved]
  - Dark circles under eyes [Unknown]
  - Swelling face [Not Recovered/Not Resolved]
  - Dizziness [Unknown]
  - Vision blurred [Recovered/Resolved]
  - Arthralgia [Not Recovered/Not Resolved]
  - Alopecia [Unknown]
  - Eye swelling [Not Recovered/Not Resolved]
  - Haemoglobin decreased [Recovering/Resolving]
  - Paraesthesia [Unknown]
  - Haematocrit increased [Not Recovered/Not Resolved]
  - Pain [Recovered/Resolved]
  - Eye pain [Not Recovered/Not Resolved]
  - Hypersensitivity [Unknown]
  - Off label use [Unknown]
  - Hair texture abnormal [Unknown]

NARRATIVE: CASE EVENT DATE: 20250101
